FAERS Safety Report 9065081 (Version 1)
Quarter: 2013Q1

REPORT INFORMATION
  Report Type: Report from Study
  Country: US (occurrence: US)
  Receive Date: 20130130
  Receipt Date: 20130130
  Transmission Date: 20140127
  Serious: No
  Sender: FDA-Public Use
  Company Number: US-ABBOTT-12P-163-0969326-00

PATIENT
  Sex: Female
  Weight: 58.11 kg

DRUGS (4)
  1. HUMIRA 40 MG/ 0.8 ML PRE-FILLED SYRINGE [Suspect]
     Indication: CROHN^S DISEASE
     Dates: start: 201207, end: 201207
  2. HUMIRA 40 MG/ 0.8 ML PRE-FILLED SYRINGE [Suspect]
  3. CELEXA [Concomitant]
     Indication: DEPRESSION
  4. CELEXA [Concomitant]
     Indication: ANXIETY

REACTIONS (1)
  - Cough [Recovered/Resolved]
